FAERS Safety Report 15188974 (Version 1)
Quarter: 2018Q3

REPORT INFORMATION
  Report Type: Spontaneous
  Country: US (occurrence: US)
  Receive Date: 20180625
  Receipt Date: 20180625
  Transmission Date: 20181010
  Serious: No
  Sender: FDA-Public Use
  Company Number: None

PATIENT
  Age: 45 Week
  Sex: Female

DRUGS (1)
  1. IBRANCE [Suspect]
     Active Substance: PALBOCICLIB
     Indication: BREAST CANCER
     Dosage: ?          OTHER FREQUENCY:ONCE DAILY FOR 21 ;?
     Route: 048
     Dates: start: 20180228

REACTIONS (3)
  - Pyrexia [None]
  - Rash [None]
  - Pelvic inflammatory disease [None]

NARRATIVE: CASE EVENT DATE: 20180401
